FAERS Safety Report 15338067 (Version 1)
Quarter: 2018Q3

REPORT INFORMATION
  Report Type: Spontaneous
  Country: US (occurrence: US)
  Receive Date: 20180827
  Receipt Date: 20180827
  Transmission Date: 20181010
  Serious: No
  Sender: FDA-Public Use
  Company Number: None

PATIENT
  Age: 68 Year
  Sex: Female
  Weight: 78.75 kg

DRUGS (6)
  1. TURMINIC [Concomitant]
  2. PROBIOTICS [Concomitant]
     Active Substance: PROBIOTICS NOS
  3. NITROFURANTION MONO 100 MG CAP NOR [Suspect]
     Active Substance: NITROFURANTOIN\NITROFURANTOIN MONOHYDRATE
     Indication: URINARY TRACT INFECTION
     Dosage: ?          QUANTITY:1 CAPSULE(S);?
     Route: 048
  4. BABY ASPIRIN [Concomitant]
     Active Substance: ASPIRIN
  5. CRANBERRY. [Concomitant]
     Active Substance: CRANBERRY
  6. LUTEIN [Concomitant]
     Active Substance: LUTEIN

REACTIONS (6)
  - Myalgia [None]
  - Pyrexia [None]
  - Chills [None]
  - Arthralgia [None]
  - Dyspnoea [None]
  - Headache [None]

NARRATIVE: CASE EVENT DATE: 20180821
